FAERS Safety Report 4776981-3 (Version None)
Quarter: 2005Q3

REPORT INFORMATION
  Report Type: 
  Country: None (occurrence: None)
  Receive Date: 20050923
  Receipt Date: 20050909
  Transmission Date: 20060218
  Serious: Yes (Death, Other)
  Sender: FDA-Public Use
  Company Number: PHBS2005BE13219

PATIENT
  Sex: Female

DRUGS (3)
  1. RITALIN [Suspect]
     Route: 042
  2. BIOCODONE [Suspect]
     Route: 042
  3. MORPHINE [Suspect]
     Route: 042

REACTIONS (2)
  - DRUG ABUSER [None]
  - SYSTEMIC LUPUS ERYTHEMATOSUS [None]
